FAERS Safety Report 22647998 (Version 2)
Quarter: 2023Q4

REPORT INFORMATION
  Report Type: Report from Study
  Country: BG (occurrence: BG)
  Receive Date: 20230628
  Receipt Date: 20231213
  Transmission Date: 20240110
  Serious: Yes (Death, Other)
  Sender: FDA-Public Use
  Company Number: BG-CELLTRION INC.-2023BG012856

PATIENT

DRUGS (9)
  1. BEVACIZUMAB [Suspect]
     Active Substance: BEVACIZUMAB
     Indication: Hepatocellular carcinoma
     Dosage: 1000 MILLIGRAM
     Route: 065
     Dates: start: 20220905
  2. ATEZOLIZUMAB [Suspect]
     Active Substance: ATEZOLIZUMAB
     Indication: Hepatocellular carcinoma
     Dosage: 1200 MILLIGRAM
     Route: 042
     Dates: start: 20220905
  3. NEBIVOLOL HYDROCHLORIDE [Concomitant]
     Active Substance: NEBIVOLOL HYDROCHLORIDE
     Dosage: EVERY 1 DAY
     Dates: end: 20230409
  4. FEBUXOSTAT [Concomitant]
     Active Substance: FEBUXOSTAT
     Dosage: 0.33 PER WEEK
     Dates: start: 20221120
  5. DIETARY SUPPLEMENT\HERBALS\MILK THISTLE [Concomitant]
     Active Substance: MILK THISTLE
     Dosage: EVERY 1 DAY
     Dates: start: 20230518, end: 20230520
  6. TROMBEX [CLOPIDOGREL BISULFATE] [Concomitant]
     Dosage: EVERY 1 DAY
  7. SPIRONOLACTONE [Concomitant]
     Active Substance: SPIRONOLACTONE
     Dosage: 0.5 PER DAY
  8. SOPRAL [OMEPRAZOLE] [Concomitant]
     Dosage: EVERY 1 DAY
     Dates: start: 20230518, end: 20230520
  9. SODIUM CHLORIDE [Concomitant]
     Active Substance: SODIUM CHLORIDE
     Dosage: EVERY 1 DAY
     Dates: start: 20230518, end: 20230520

REACTIONS (5)
  - Death [Fatal]
  - Ascites [Recovered/Resolved]
  - Hypertension [Recovering/Resolving]
  - Cough [Recovered/Resolved]
  - Intentional product use issue [Unknown]

NARRATIVE: CASE EVENT DATE: 20230120
